FAERS Safety Report 5387541-8 (Version None)
Quarter: 2007Q3

REPORT INFORMATION
  Report Type: 
  Country: None (occurrence: None)
  Receive Date: 20070712
  Receipt Date: 20070702
  Transmission Date: 20080115
  Serious: Yes (Other)
  Sender: FDA-Public Use
  Company Number: 2007315993

PATIENT
  Sex: Female

DRUGS (1)
  1. ROGAINE [Suspect]
     Indication: ALOPECIA
     Dosage: FOLLOWING INSTRUCTIONS EXACTELY, TOPICAL
     Route: 061
     Dates: start: 20050821, end: 20061101

REACTIONS (2)
  - HEPATIC INFECTION [None]
  - HEPATOCELLULAR DAMAGE [None]
